FAERS Safety Report 7070848-6 (Version None)
Quarter: 2010Q4

REPORT INFORMATION
  Report Type: 
  Country: None (occurrence: None)
  Receive Date: 20101027
  Receipt Date: 20101027
  Transmission Date: 20110411
  Serious: Yes (Other)
  Sender: FDA-Public Use
  Company Number: None

PATIENT
  Sex: Female

DRUGS (1)
  1. OMNIPAQUE 350 [Suspect]
     Dosage: 100 ML

REACTIONS (5)
  - DYSPNOEA [None]
  - ORBITAL OEDEMA [None]
  - PRURITUS [None]
  - URTICARIA [None]
  - VOMITING [None]
